FAERS Safety Report 21078555 (Version 1)
Quarter: 2022Q3

REPORT INFORMATION
  Report Type: Other
  Country: ID (occurrence: None)
  Receive Date: 20220713
  Receipt Date: 20220713
  Transmission Date: 20221027
  Serious: Yes (Hospitalization)
  Sender: FDA-Public Use
  Company Number: ID-ROCHE-3131501

PATIENT
  Sex: Female

DRUGS (1)
  1. HERCEPTIN [Suspect]
     Active Substance: TRASTUZUMAB
     Indication: Breast cancer
     Route: 058

REACTIONS (3)
  - Blood sodium decreased [Unknown]
  - Blood potassium decreased [Unknown]
  - Diarrhoea [Unknown]
